FAERS Safety Report 4643047-2 (Version None)
Quarter: 2005Q2

REPORT INFORMATION
  Report Type: 
  Country: None (occurrence: None)
  Receive Date: 20050421
  Receipt Date: 20050217
  Transmission Date: 20051028
  Serious: Yes (Hospitalization)
  Sender: FDA-Public Use
  Company Number: 2005027424

PATIENT
  Age: 69 Year
  Sex: Male
  Weight: 52 kg

DRUGS (8)
  1. ALDACTONE [Suspect]
     Indication: ASCITES
     Dosage: 100 MG (50 MG, BID), ORAL
     Route: 048
     Dates: start: 20040705, end: 20050123
  2. PHENYTOIN [Suspect]
     Indication: EPILEPSY
     Dosage: 300 MG (100 MG, TID), ORAL
     Route: 048
     Dates: start: 20041130, end: 20050123
  3. NIFEDIPINE [Suspect]
     Indication: HYPERTENSION
     Dosage: 10 MG (10 MG, QD), ORAL
     Route: 048
     Dates: start: 20050114, end: 20050114
  4. NIFEDIPINE [Suspect]
     Indication: HYPERTENSION
     Dosage: 4 MG (2 MG, BID), ORAL
     Route: 048
     Dates: start: 20050114, end: 20050123
  5. MENATETRENONE (MENATETRENONE) [Concomitant]
  6. DIMETICONE (DIMETICONE) [Concomitant]
  7. FUROSEMIDE [Concomitant]
  8. LACTITOL (LACTITOL) [Concomitant]

REACTIONS (4)
  - ERYTHEMA MULTIFORME [None]
  - HYPERTENSION [None]
  - PYREXIA [None]
  - STEVENS-JOHNSON SYNDROME [None]
